FAERS Safety Report 10703907 (Version 1)
Quarter: 2015Q1

REPORT INFORMATION
  Report Type: Spontaneous
  Country: US (occurrence: US)
  Receive Date: 20150112
  Receipt Date: 20150112
  Transmission Date: 20150721
  Serious: No
  Sender: FDA-Public Use
  Company Number: US-009507513-1501USA002473

PATIENT
  Sex: Female

DRUGS (1)
  1. IMPLANON [Suspect]
     Active Substance: ETONOGESTREL
     Indication: CONTRACEPTION
     Dosage: 1 DF(SINGLE ROD), UNK
     Route: 059
     Dates: start: 20111229

REACTIONS (3)
  - Haemorrhage [Unknown]
  - Muscle spasms [Unknown]
  - Incorrect drug administration duration [Unknown]
